FAERS Safety Report 8885247 (Version 4)
Quarter: 2012Q4

REPORT INFORMATION
  Report Type: 
  Country: US (occurrence: US)
  Receive Date: 20121105
  Receipt Date: 20121219
  Transmission Date: 20130627
  Serious: Yes (Death, Hospitalization, Other)
  Sender: FDA-Public Use
  Company Number: US-ACTELION-A-US2012-73453

PATIENT
  Age: 45 Year
  Sex: Male

DRUGS (5)
  1. VELETRI [Suspect]
     Indication: PULMONARY HYPERTENSION
     Dosage: 8.3 ng/kg, per min
     Route: 042
     Dates: start: 20110831
  2. VELETRI [Suspect]
     Dosage: 8.5 ng/kg, per min
     Route: 042
     Dates: end: 20121206
  3. PRADAXA [Concomitant]
  4. SILDENAFIL [Concomitant]
  5. LETAIRIS [Concomitant]

REACTIONS (5)
  - Death [Fatal]
  - Colon cancer [Unknown]
  - Large intestine polyp [Unknown]
  - Gastrointestinal haemorrhage [Unknown]
  - Staphylococcal infection [Unknown]
